FAERS Safety Report 5207314-6 (Version None)
Quarter: 2006Q4

REPORT INFORMATION
  Report Type: 
  Country: None (occurrence: None)
  Receive Date: 20061027
  Receipt Date: 20060208
  Transmission Date: 20070319
  Serious: Yes (Other)
  Sender: FDA-Public Use
  Company Number: HQWYE735109FEB06

PATIENT
  Age: 43 Year
  Sex: Female
  Weight: 94.43 kg

DRUGS (4)
  1. PREMARIN [Suspect]
     Indication: OESTROGEN REPLACEMENT THERAPY
     Dosage: 0.9 MG 1X PER 1 DAY, ORAL
     Route: 048
     Dates: start: 20050201
  2. AMLODIPINE [Concomitant]
  3. ESOMEPRAZOLE (ESOMEPRAZOLE) [Concomitant]
  4. FLONASE [Concomitant]

REACTIONS (8)
  - ALOPECIA [None]
  - ANXIETY [None]
  - CEREBROVASCULAR ACCIDENT [None]
  - CONDITION AGGRAVATED [None]
  - DECREASED APPETITE [None]
  - DYSPNOEA [None]
  - HYPERTENSION [None]
  - WEIGHT DECREASED [None]
